FAERS Safety Report 7898084-1 (Version None)
Quarter: 2011Q4

REPORT INFORMATION
  Report Type: 
  Country: None (occurrence: None)
  Receive Date: 20111107
  Receipt Date: 20111101
  Transmission Date: 20120403
  Serious: Yes (Other)
  Sender: FDA-Public Use
  Company Number: US-PFIZER INC-2011261807

PATIENT
  Sex: Female
  Weight: 97.5 kg

DRUGS (1)
  1. CHANTIX [Suspect]
     Indication: SMOKING CESSATION THERAPY
     Dosage: 0.5 MG, 1X/DAY
     Route: 048
     Dates: start: 20111019, end: 20110101

REACTIONS (9)
  - SUICIDAL IDEATION [None]
  - NAUSEA [None]
  - CRYING [None]
  - ABNORMAL BEHAVIOUR [None]
  - ANGER [None]
  - ABNORMAL DREAMS [None]
  - VIOLENCE-RELATED SYMPTOM [None]
  - MOOD SWINGS [None]
  - ANXIETY [None]
